FAERS Safety Report 5491203-6 (Version None)
Quarter: 2007Q4

REPORT INFORMATION
  Report Type: 
  Country: None (occurrence: None)
  Receive Date: 20071019
  Receipt Date: 20071010
  Transmission Date: 20080405
  Serious: Yes (Hospitalization)
  Sender: FDA-Public Use
  Company Number: FR-ABBOTT-07P-056-0420268-00

PATIENT
  Sex: Female

DRUGS (2)
  1. DEPAKENE [Suspect]
     Indication: EPILEPSY
     Route: 048
     Dates: start: 20070804
  2. AMLODIPINE BESYLATE [Interacting]
     Indication: HYPERTENSION
     Route: 048
     Dates: start: 20070804, end: 20070820

REACTIONS (8)
  - DISORIENTATION [None]
  - DRUG INTERACTION [None]
  - DYSPHONIA [None]
  - DYSPNOEA [None]
  - FACE OEDEMA [None]
  - MACROGENIA [None]
  - PAROTID GLAND ENLARGEMENT [None]
  - SALIVARY GLAND ENLARGEMENT [None]
